FAERS Safety Report 19204588 (Version 1)
Quarter: 2021Q2

REPORT INFORMATION
  Report Type: Other
  Country: GB (occurrence: GB)
  Receive Date: 20210503
  Receipt Date: 20210503
  Transmission Date: 20210717
  Serious: Yes (Life-Threatening, Hospitalization, Other)
  Sender: FDA-Public Use
  Company Number: GB-GLENMARK PHARMACEUTICALS-2021GMK053703

PATIENT

DRUGS (2)
  1. ESTROGEN NOS [Concomitant]
     Active Substance: ESTROGENS
     Indication: PRODUCT USED FOR UNKNOWN INDICATION
     Dosage: UNK
     Route: 065
  2. SOLIFENACIN SUCCINATE. [Suspect]
     Active Substance: SOLIFENACIN SUCCINATE
     Indication: STRESS URINARY INCONTINENCE
     Dosage: 5 MILLIGRAM
     Route: 048
     Dates: start: 20150404, end: 20210401

REACTIONS (5)
  - Anhidrosis [Unknown]
  - Syncope [Unknown]
  - Hyperthermia [Unknown]
  - Heat stroke [Recovered/Resolved with Sequelae]
  - Hypertension [Unknown]
